FAERS Safety Report 9357875 (Version 1)
Quarter: 2013Q2

REPORT INFORMATION
  Report Type: Spontaneous
  Country: US (occurrence: US)
  Receive Date: 20130620
  Receipt Date: 20130620
  Transmission Date: 20140414
  Serious: No
  Sender: FDA-Public Use
  Company Number: US-GALDERMA-US-GDP-0512365

PATIENT
  Age: 16 Year
  Sex: Male

DRUGS (3)
  1. DIFFERIN [Suspect]
     Route: 061
     Dates: start: 2004
  2. FEXOFENADINE [Concomitant]
  3. ESOMEPRAZOLE [Concomitant]

REACTIONS (1)
  - Alopecia [Not Recovered/Not Resolved]
